FAERS Safety Report 4751581-X (Version None)
Quarter: 2005Q3

REPORT INFORMATION
  Report Type: 
  Country: None (occurrence: None)
  Receive Date: 20050824
  Receipt Date: 20050818
  Transmission Date: 20060218
  Serious: Yes (Other)
  Sender: FDA-Public Use
  Company Number: GB-GLAXOSMITHKLINE-B0391207A

PATIENT
  Age: 34 Year
  Sex: Female
  Weight: 82.5 kg

DRUGS (1)
  1. ZYBAN [Suspect]
     Dosage: 150MG TWICE PER DAY
     Route: 048
     Dates: start: 20050510, end: 20050518

REACTIONS (4)
  - DEPRESSED MOOD [None]
  - DIZZINESS [None]
  - FEELING ABNORMAL [None]
  - TEARFULNESS [None]
